FAERS Safety Report 21242183 (Version 1)
Quarter: 2022Q3

REPORT INFORMATION
  Report Type: Other
  Country: DE (occurrence: DE)
  Receive Date: 20220823
  Receipt Date: 20220823
  Transmission Date: 20221027
  Serious: Yes (Hospitalization)
  Sender: FDA-Public Use
  Company Number: DE-VER-202200017

PATIENT
  Age: 83 Year
  Sex: Male
  Weight: 95 kg

DRUGS (15)
  1. FOSFOMYCIN SODIUM [Suspect]
     Active Substance: FOSFOMYCIN SODIUM
     Indication: Skin infection
     Route: 042
     Dates: start: 20220220, end: 20220323
  2. FOSFOMYCIN SODIUM [Suspect]
     Active Substance: FOSFOMYCIN SODIUM
     Indication: Soft tissue infection
     Route: 042
     Dates: start: 20220220, end: 20220323
  3. FOSFOMYCIN SODIUM [Suspect]
     Active Substance: FOSFOMYCIN SODIUM
     Indication: Postoperative wound infection
     Route: 042
     Dates: start: 20220220, end: 20220323
  4. MOXIFLOXACIN [Concomitant]
     Active Substance: MOXIFLOXACIN
     Indication: Skin infection
     Route: 042
     Dates: start: 20220223, end: 20220228
  5. MOXIFLOXACIN [Concomitant]
     Active Substance: MOXIFLOXACIN
     Indication: Soft tissue infection
     Route: 042
     Dates: start: 20220223, end: 20220228
  6. MOXIFLOXACIN [Concomitant]
     Active Substance: MOXIFLOXACIN
     Indication: Postoperative wound infection
     Route: 042
     Dates: start: 20220223, end: 20220228
  7. DAPTOMYCIN [Concomitant]
     Active Substance: DAPTOMYCIN
     Indication: Skin infection
     Route: 042
     Dates: start: 20220228, end: 20220322
  8. DAPTOMYCIN [Concomitant]
     Active Substance: DAPTOMYCIN
     Indication: Soft tissue infection
     Route: 042
     Dates: start: 20220228, end: 20220322
  9. DAPTOMYCIN [Concomitant]
     Active Substance: DAPTOMYCIN
     Indication: Postoperative wound infection
     Route: 042
     Dates: start: 20220228, end: 20220322
  10. VANCOMYCIN [Concomitant]
     Active Substance: VANCOMYCIN
     Indication: Skin infection
     Route: 042
     Dates: start: 20220220, end: 20220223
  11. VANCOMYCIN [Concomitant]
     Active Substance: VANCOMYCIN
     Indication: Soft tissue infection
     Route: 042
     Dates: start: 20220220, end: 20220223
  12. VANCOMYCIN [Concomitant]
     Active Substance: VANCOMYCIN
     Indication: Postoperative wound infection
     Route: 042
     Dates: start: 20220220, end: 20220223
  13. CEFTRIAXONE [Concomitant]
     Active Substance: CEFTRIAXONE
     Indication: Skin infection
     Route: 042
     Dates: start: 20220220, end: 20220222
  14. CEFTRIAXONE [Concomitant]
     Active Substance: CEFTRIAXONE
     Indication: Soft tissue infection
     Route: 042
     Dates: start: 20220220, end: 20220222
  15. CEFTRIAXONE [Concomitant]
     Active Substance: CEFTRIAXONE
     Indication: Postoperative wound infection
     Route: 042
     Dates: start: 20220220, end: 20220222

REACTIONS (2)
  - Pathogen resistance [Recovered/Resolved]
  - Hypokalaemia [Recovered/Resolved]

NARRATIVE: CASE EVENT DATE: 20220228
